FAERS Safety Report 24728633 (Version 1)
Quarter: 2024Q4

REPORT INFORMATION
  Report Type: Spontaneous
  Country: US (occurrence: US)
  Receive Date: 20241212
  Receipt Date: 20241212
  Transmission Date: 20250115
  Serious: Yes (Hospitalization)
  Sender: ELI LILLY AND COMPANY
  Company Number: US-ELI_LILLY_AND_COMPANY-US202412005919

PATIENT
  Age: 67 Year
  Sex: Female
  Weight: 45.351 kg

DRUGS (2)
  1. ABEMACICLIB [Suspect]
     Active Substance: ABEMACICLIB
     Indication: Small cell lung cancer
     Dosage: 50 MG, BID
     Route: 048
     Dates: start: 20241204
  2. LACTATED RINGERS SOLUTION [Concomitant]
     Active Substance: CALCIUM CHLORIDE\POTASSIUM CHLORIDE\SODIUM CHLORIDE\SODIUM LACTATE
     Indication: Product used for unknown indication

REACTIONS (3)
  - Hypotension [Recovered/Resolved]
  - Off label use [Unknown]
  - Haemoglobin decreased [Unknown]
